FAERS Safety Report 20643860 (Version 1)
Quarter: 2022Q1

REPORT INFORMATION
  Report Type: Spontaneous
  Country: US (occurrence: US)
  Receive Date: 20220328
  Receipt Date: 20220328
  Transmission Date: 20220423
  Serious: No
  Sender: FDA-Public Use
  Company Number: US-JUBILANT CADISTA PHARMACEUTICALS-2021JUB00188

PATIENT
  Age: 72 Year
  Sex: Female

DRUGS (5)
  1. IRBESARTAN [Suspect]
     Active Substance: IRBESARTAN
     Indication: Renal artery stenosis
  2. IRBESARTAN [Suspect]
     Active Substance: IRBESARTAN
     Indication: Hypertension
  3. VALSARTAN [Suspect]
     Active Substance: VALSARTAN
     Indication: Renal artery stenosis
     Dosage: 320 MG
     Route: 048
     Dates: start: 20210327, end: 20210623
  4. VALSARTAN [Suspect]
     Active Substance: VALSARTAN
     Indication: Hypertension
  5. UNSPECIFIED OTHER MEDICINES [Concomitant]

REACTIONS (11)
  - Pain [Not Recovered/Not Resolved]
  - Apathy [Not Recovered/Not Resolved]
  - Abnormal faeces [Not Recovered/Not Resolved]
  - Quality of life decreased [Not Recovered/Not Resolved]
  - Depressed mood [Not Recovered/Not Resolved]
  - Fear of eating [Not Recovered/Not Resolved]
  - Decreased appetite [Not Recovered/Not Resolved]
  - Nausea [Not Recovered/Not Resolved]
  - Palpitations [Not Recovered/Not Resolved]
  - Alopecia [Not Recovered/Not Resolved]
  - Fatigue [Not Recovered/Not Resolved]

NARRATIVE: CASE EVENT DATE: 20210101
